FAERS Safety Report 12080524 (Version 2)
Quarter: 2016Q1

REPORT INFORMATION
  Report Type: Spontaneous
  Country: KZ (occurrence: KZ)
  Receive Date: 20160216
  Receipt Date: 20160325
  Transmission Date: 20160526
  Serious: Yes (Hospitalization)
  Sender: FDA-Public Use
  Company Number: KZ-GE HEALTHCARE MEDICAL DIAGNOSTICS-VISP-PR-1602S-0053

PATIENT
  Age: 37 Year
  Sex: Male

DRUGS (3)
  1. VISIPAQUE [Suspect]
     Active Substance: IODIXANOL
     Indication: DIAGNOSTIC PROCEDURE
  2. HEPARIN [Concomitant]
     Active Substance: HEPARIN SODIUM
     Dates: start: 20160205
  3. VISIPAQUE [Suspect]
     Active Substance: IODIXANOL
     Indication: FALLOT^S TETRALOGY
     Route: 016
     Dates: start: 20160205, end: 20160205

REACTIONS (5)
  - Chills [Recovered/Resolved]
  - Rash generalised [Recovered/Resolved]
  - Hypotension [Recovered/Resolved]
  - Pyrexia [Recovered/Resolved]
  - Altered state of consciousness [Recovered/Resolved]

NARRATIVE: CASE EVENT DATE: 20160205
